FAERS Safety Report 5845623-8 (Version None)
Quarter: 2008Q3

REPORT INFORMATION
  Report Type: 
  Country: None (occurrence: None)
  Receive Date: 20080814
  Receipt Date: 20080807
  Transmission Date: 20090109
  Serious: Yes (Hospitalization, Other)
  Sender: FDA-Public Use
  Company Number: US-SANOFI-SYNTHELABO-A03200803134

PATIENT
  Age: 77 Year
  Sex: Male

DRUGS (4)
  1. CASODEX [Concomitant]
     Indication: DRUG USE FOR UNKNOWN INDICATION
     Dosage: UNK
     Route: 065
     Dates: end: 20080301
  2. ELIGARD [Suspect]
     Indication: PROSTATIC DISORDER
     Route: 058
     Dates: start: 20071201, end: 20071201
  3. ELIGARD [Suspect]
     Route: 058
     Dates: start: 20080606, end: 20080606
  4. VITAMIN TAB [Concomitant]
     Indication: DRUG USE FOR UNKNOWN INDICATION
     Dosage: UNK
     Route: 065

REACTIONS (2)
  - BLOOD PRESSURE FLUCTUATION [None]
  - CONVULSION [None]
